FAERS Safety Report 24244218 (Version 1)
Quarter: 2024Q3

REPORT INFORMATION
  Report Type: Spontaneous
  Country: CO (occurrence: CO)
  Receive Date: 20240823
  Receipt Date: 20240823
  Transmission Date: 20241017
  Serious: Yes (Life-Threatening, Hospitalization, Other)
  Sender: BRISTOL MYERS SQUIBB
  Company Number: CO-BRISTOL-MYERS SQUIBB COMPANY-2024-132560

PATIENT
  Age: 62 Year
  Sex: Male

DRUGS (1)
  1. OPDIVO [Suspect]
     Active Substance: NIVOLUMAB
     Indication: Metastases to kidney
     Dosage: STRENGTH: 100MG/10ML AND 40 MG/4ML
     Route: 042
     Dates: start: 201703

REACTIONS (4)
  - Distributive shock [Recovered/Resolved]
  - Diarrhoea [Recovered/Resolved]
  - Autoimmune hepatitis [Unknown]
  - Cardiotoxicity [Unknown]

NARRATIVE: CASE EVENT DATE: 20240508
